FAERS Safety Report 18695777 (Version 1)
Quarter: 2021Q1

REPORT INFORMATION
  Report Type: Spontaneous
  Country: DE (occurrence: DE)
  Receive Date: 20210104
  Receipt Date: 20210104
  Transmission Date: 20210419
  Serious: Yes (Other)
  Sender: FDA-Public Use
  Company Number: DE-DSJP-DSE-2020-140346

PATIENT
  Sex: Female

DRUGS (2)
  1. LIXIANA [Suspect]
     Active Substance: EDOXABAN TOSYLATE
     Indication: ATRIAL FIBRILLATION
     Dosage: 60 MG, QD
     Route: 048
  2. CLEXANE [Interacting]
     Active Substance: ENOXAPARIN SODIUM
     Indication: BLADDER NEOPLASM SURGERY
     Dosage: 0.4 UNK
     Route: 058
     Dates: start: 202012

REACTIONS (4)
  - Contraindicated product administered [Not Recovered/Not Resolved]
  - Bladder papilloma [Recovered/Resolved]
  - Faeces discoloured [Not Recovered/Not Resolved]
  - Drug interaction [Not Recovered/Not Resolved]

NARRATIVE: CASE EVENT DATE: 202012
